FAERS Safety Report 18310860 (Version 2)
Quarter: 2020Q4

REPORT INFORMATION
  Report Type: Other
  Country: BE (occurrence: BE)
  Receive Date: 20200925
  Receipt Date: 20201214
  Transmission Date: 20210113
  Serious: Yes (Other)
  Sender: FDA-Public Use
  Company Number: BE-ROCHE-2681092

PATIENT
  Sex: Male
  Weight: 103 kg

DRUGS (10)
  1. RITUXIMAB. [Suspect]
     Active Substance: RITUXIMAB
     Dosage: 4X500 MG
     Route: 065
     Dates: start: 201912
  2. LAMOTRIGINE. [Concomitant]
     Active Substance: LAMOTRIGINE
     Indication: SEIZURE
  3. SULFAMETHOXAZOLE/TRIMETHOPRIM [Concomitant]
     Active Substance: SULFAMETHOXAZOLE\TRIMETHOPRIM
     Dosage: 160/800
  4. ROACTEMRA [Suspect]
     Active Substance: TOCILIZUMAB
     Indication: LIMBIC ENCEPHALITIS
     Dosage: Q4WE
     Route: 065
     Dates: start: 20201005
  5. PANTOPRAZOLE [Concomitant]
     Active Substance: PANTOPRAZOLE
  6. RITUXIMAB. [Suspect]
     Active Substance: RITUXIMAB
     Dosage: 4X500 MG
     Route: 065
     Dates: start: 201905
  7. BORTEZOMIB. [Suspect]
     Active Substance: BORTEZOMIB
     Indication: LIMBIC ENCEPHALITIS
     Dosage: 7*2.6 MG (1.3MG/M2)
     Route: 065
     Dates: start: 202005
  8. SILDENAFIL. [Concomitant]
     Active Substance: SILDENAFIL
     Dosage: 100 MG QD
  9. RITUXIMAB. [Suspect]
     Active Substance: RITUXIMAB
     Indication: LIMBIC ENCEPHALITIS
     Dosage: 4X500 MG
     Route: 065
     Dates: start: 201808
  10. GAMMANORM [Concomitant]
     Active Substance: HUMAN IMMUNOGLOBULIN G
     Dosage: SC 8,25G/WEEK
     Route: 058

REACTIONS (8)
  - Abnormal behaviour [Unknown]
  - Cognitive disorder [Unknown]
  - Off label use [Unknown]
  - Intentional product use issue [Unknown]
  - B-lymphocyte count decreased [Unknown]
  - Mood altered [Unknown]
  - Limbic encephalitis [Unknown]
  - Insomnia [Unknown]
